FAERS Safety Report 15163384 (Version 2)
Quarter: 2018Q3

REPORT INFORMATION
  Report Type: Spontaneous
  Country: US (occurrence: US)
  Receive Date: 20180719
  Receipt Date: 20180727
  Transmission Date: 20181010
  Serious: No
  Sender: FDA-Public Use
  Company Number: US-TEVA-2018-US-928430

PATIENT
  Age: 49 Year
  Sex: Female
  Weight: 113 kg

DRUGS (4)
  1. SYNRIBO [Suspect]
     Active Substance: OMACETAXINE MEPESUCCINATE
     Indication: CHRONIC MYELOID LEUKAEMIA
     Route: 065
     Dates: start: 20180707, end: 20180716
  2. CELEBREX [Concomitant]
     Active Substance: CELECOXIB
  3. LORAZEPAM. [Concomitant]
     Active Substance: LORAZEPAM
  4. DOXEPIN [Concomitant]
     Active Substance: DOXEPIN

REACTIONS (5)
  - Nausea [Not Recovered/Not Resolved]
  - Fluid retention [Not Recovered/Not Resolved]
  - Injection site mass [Unknown]
  - Vomiting [Not Recovered/Not Resolved]
  - Injection site pain [Unknown]

NARRATIVE: CASE EVENT DATE: 201807
